FAERS Safety Report 4940556-3 (Version None)
Quarter: 2006Q1

REPORT INFORMATION
  Report Type: 
  Country: None (occurrence: None)
  Receive Date: 20060201
  Receipt Date: 20051125
  Transmission Date: 20060701
  Serious: No
  Sender: FDA-Public Use
  Company Number: 2005PV004892

PATIENT
  Age: 56 Year
  Sex: Female
  Weight: 91.173 kg

DRUGS (4)
  1. BYETTA [Suspect]
     Indication: DIABETES MELLITUS NON-INSULIN-DEPENDENT
     Dosage: 5 MCG;BID;SC
     Route: 058
     Dates: start: 20051121, end: 20051125
  2. ACTOS [Concomitant]
  3. HUMALOG 75/25 /USA/ [Concomitant]
  4. ZANTAC [Concomitant]

REACTIONS (10)
  - BLOOD GLUCOSE INCREASED [None]
  - DYSPEPSIA [None]
  - DYSPHAGIA [None]
  - ERUCTATION [None]
  - GASTROOESOPHAGEAL REFLUX DISEASE [None]
  - HEADACHE [None]
  - NAUSEA [None]
  - OESOPHAGEAL PAIN [None]
  - VOMITING [None]
  - WEIGHT DECREASED [None]
